FAERS Safety Report 8473515-7 (Version None)
Quarter: 2012Q2

REPORT INFORMATION
  Report Type: 
  Country: None (occurrence: None)
  Receive Date: 20120622
  Receipt Date: 20120622
  Transmission Date: 20120825
  Serious: Yes (Other)
  Sender: FDA-Public Use
  Company Number: None

PATIENT
  Sex: Female
  Weight: 72.5755 kg

DRUGS (2)
  1. CYMBALTA [Suspect]
     Indication: COMPLEX REGIONAL PAIN SYNDROME
     Dosage: 30 MG 1 DAILY PO
     Route: 048
     Dates: start: 20120501, end: 20120621
  2. CYMBALTA [Suspect]
     Indication: DEPRESSION
     Dosage: 60 MG 1 DAILY PO
     Route: 048
     Dates: start: 20090613, end: 20120530

REACTIONS (6)
  - VOMITING [None]
  - HEADACHE [None]
  - NAUSEA [None]
  - WITHDRAWAL SYNDROME [None]
  - MIGRAINE [None]
  - PARAESTHESIA [None]
